FAERS Safety Report 16618485 (Version 4)
Quarter: 2019Q4

REPORT INFORMATION
  Report Type: Report from Study
  Country: CA (occurrence: CA)
  Receive Date: 20190723
  Receipt Date: 20191108
  Transmission Date: 20200122
  Serious: Yes (Other)
  Sender: FDA-Public Use
  Company Number: CA-JNJFOC-20190422838

PATIENT
  Age: 43 Year
  Sex: Female
  Weight: 203 kg

DRUGS (3)
  1. GABAPENTIN. [Suspect]
     Active Substance: GABAPENTIN
     Indication: PRODUCT USED FOR UNKNOWN INDICATION
  2. REMICADE [Suspect]
     Active Substance: INFLIXIMAB
     Indication: CROHN^S DISEASE
     Route: 042
     Dates: start: 20180221
  3. REMICADE [Suspect]
     Active Substance: INFLIXIMAB
     Route: 042
     Dates: start: 20180221

REACTIONS (8)
  - Crohn^s disease [Unknown]
  - Therapeutic product effect decreased [Unknown]
  - Stress [Unknown]
  - Abnormal loss of weight [Unknown]
  - Herpes zoster [Recovering/Resolving]
  - Abnormal weight gain [Unknown]
  - Infected fistula [Recovering/Resolving]
  - Nasopharyngitis [Recovering/Resolving]

NARRATIVE: CASE EVENT DATE: 201904
